FAERS Safety Report 25343137 (Version 1)
Quarter: 2025Q2

REPORT INFORMATION
  Report Type: Spontaneous
  Country: KR (occurrence: KR)
  Receive Date: 20250521
  Receipt Date: 20250521
  Transmission Date: 20250717
  Serious: Yes (Other)
  Sender: PFIZER
  Company Number: KR-PFIZER INC-202500105175

PATIENT
  Age: 53 Year
  Sex: Female

DRUGS (1)
  1. LORLATINIB [Suspect]
     Active Substance: LORLATINIB
     Dates: start: 20230524, end: 20230615

REACTIONS (3)
  - Metastases to lung [Unknown]
  - Pericardial effusion [Unknown]
  - Pleural effusion [Unknown]
